FAERS Safety Report 18197291 (Version 3)
Quarter: 2023Q1

REPORT INFORMATION
  Report Type: Spontaneous
  Country: CA (occurrence: CA)
  Receive Date: 20200826
  Receipt Date: 20230123
  Transmission Date: 20230417
  Serious: Yes (Hospitalization, Other)
  Sender: FDA-Public Use
  Company Number: CA-009507513-2008CAN012225

PATIENT
  Age: 75 Year
  Sex: Male

DRUGS (8)
  1. CUBICIN [Suspect]
     Active Substance: DAPTOMYCIN
     Indication: Soft tissue necrosis
     Dosage: DOSAGE FORM NOT SPECIFIED
     Route: 041
  2. CUBICIN [Suspect]
     Active Substance: DAPTOMYCIN
     Indication: Enterococcal infection
  3. CUBICIN [Suspect]
     Active Substance: DAPTOMYCIN
     Indication: Diabetic foot
  4. CUBICIN [Suspect]
     Active Substance: DAPTOMYCIN
     Indication: Drug resistance
  5. MEROPENEM [Concomitant]
     Active Substance: MEROPENEM
     Indication: Diabetic foot
     Dosage: 500 MILLIGRAM, Q6H
     Route: 042
  6. MEROPENEM [Concomitant]
     Active Substance: MEROPENEM
     Indication: Necrosis
  7. MEROPENEM [Concomitant]
     Active Substance: MEROPENEM
     Indication: Drug resistance
  8. MEROPENEM [Concomitant]
     Active Substance: MEROPENEM
     Indication: Enterococcal infection

REACTIONS (3)
  - Blood creatine phosphokinase increased [Recovered/Resolved]
  - Pyrexia [Unknown]
  - Eosinophil count increased [Unknown]

NARRATIVE: CASE EVENT DATE: 20191223
